FAERS Safety Report 18853694 (Version 2)
Quarter: 2021Q2

REPORT INFORMATION
  Report Type: Spontaneous
  Country: US (occurrence: US)
  Receive Date: 20210205
  Receipt Date: 20210621
  Transmission Date: 20210717
  Serious: No
  Sender: FDA-Public Use
  Company Number: US-PFIZER INC-2021081443

PATIENT
  Age: 74 Year
  Sex: Female

DRUGS (1)
  1. EUCRISA [Suspect]
     Active Substance: CRISABOROLE
     Dosage: 1 G, DAILY (APPLY DAILY TO AFFECTED AREAS; 100 GRAM TUBE WITH 5 REFILLS)

REACTIONS (2)
  - Off label use [Unknown]
  - Visual impairment [Unknown]
